FAERS Safety Report 6063334-3 (Version None)
Quarter: 2009Q1

REPORT INFORMATION
  Report Type: 
  Country: None (occurrence: None)
  Receive Date: 20090203
  Receipt Date: 20090122
  Transmission Date: 20090719
  Serious: Yes (Hospitalization, Other)
  Sender: FDA-Public Use
  Company Number: GB-PFIZER INC-2008158356

PATIENT

DRUGS (3)
  1. CHAMPIX [Suspect]
     Dosage: 1 MG, 2X/DAY
     Route: 048
     Dates: start: 20081201, end: 20081201
  2. NOVORAPID [Concomitant]
     Dosage: UNK
     Route: 058
     Dates: start: 20010101
  3. LANTUS [Concomitant]
     Dosage: UNK
     Route: 058
     Dates: start: 20010101

REACTIONS (1)
  - BLOOD GLUCOSE INCREASED [None]
